FAERS Safety Report 9149712 (Version 1)
Quarter: 2013Q1

REPORT INFORMATION
  Report Type: Spontaneous
  Country: US (occurrence: None)
  Receive Date: 20130301
  Receipt Date: 20130301
  Transmission Date: 20140127
  Serious: No
  Sender: FDA-Public Use
  Company Number: None

PATIENT
  Sex: Male
  Weight: 81 kg

DRUGS (2)
  1. CARBOPLATIN [Suspect]
     Dates: end: 20130113
  2. TOPOTECAN [Suspect]
     Dates: end: 20130113

REACTIONS (2)
  - Bacterial test positive [None]
  - Enterococcus test positive [None]
